FAERS Safety Report 23863851 (Version 2)
Quarter: 2024Q4

REPORT INFORMATION
  Report Type: Spontaneous
  Country: FR (occurrence: FR)
  Receive Date: 20240516
  Receipt Date: 20241202
  Transmission Date: 20250114
  Serious: No
  Sender: PFIZER
  Company Number: FR-PFIZER INC-PV202400061952

PATIENT
  Age: 5 Year
  Sex: Female

DRUGS (1)
  1. NGENLA [Suspect]
     Active Substance: SOMATROGON-GHLA
     Dosage: 10.4 MG
     Route: 058

REACTIONS (1)
  - Injection site pain [Recovered/Resolved]
